FAERS Safety Report 5338134-X (Version None)
Quarter: 2007Q2

REPORT INFORMATION
  Report Type: 
  Country: None (occurrence: None)
  Receive Date: 20070530
  Receipt Date: 20070518
  Transmission Date: 20071010
  Serious: Yes (Other)
  Sender: FDA-Public Use
  Company Number: PHNU2007DE01285

PATIENT
  Age: 78 Year
  Sex: Male
  Weight: 65 kg

DRUGS (1)
  1. EXJADE [Suspect]
     Indication: HAEMOSIDEROSIS
     Dosage: 1750 MG/DAY
     Route: 048
     Dates: start: 20060728, end: 20070321

REACTIONS (2)
  - SERUM FERRITIN INCREASED [None]
  - SUDDEN HEARING LOSS [None]
